FAERS Safety Report 9565359 (Version 3)
Quarter: 2013Q4

REPORT INFORMATION
  Report Type: Spontaneous
  Country: RS (occurrence: RS)
  Receive Date: 20130930
  Receipt Date: 20131028
  Transmission Date: 20140711
  Serious: Yes (Hospitalization)
  Sender: FDA-Public Use
  Company Number: RS-ROCHE-1281121

PATIENT
  Age: 37 Year
  Sex: Female

DRUGS (9)
  1. KYTRIL [Suspect]
     Indication: PROPHYLAXIS OF NAUSEA AND VOMITING
     Route: 041
     Dates: start: 20110725
  2. KYTRIL [Suspect]
     Indication: PROPHYLAXIS OF NAUSEA AND VOMITING
  3. 5-FU [Concomitant]
     Indication: BREAST CANCER
     Route: 041
     Dates: start: 20110725
  4. DOXORUBICIN [Concomitant]
     Indication: BREAST CANCER
     Route: 041
     Dates: start: 20110725
  5. CYCLOPHOSPHAMID [Concomitant]
     Indication: BREAST CANCER
     Route: 041
     Dates: start: 20110725
  6. DEXASON [Concomitant]
     Indication: PROPHYLAXIS OF NAUSEA AND VOMITING
     Route: 041
     Dates: start: 20110725
  7. ZOLADEX [Concomitant]
     Indication: BREAST CANCER
     Route: 058
  8. NOLVADEX [Concomitant]
     Indication: BREAST CANCER
     Route: 048
  9. PALONOSETRON [Concomitant]
     Indication: BREAST CANCER

REACTIONS (2)
  - Dehydration [Recovered/Resolved]
  - Nausea [Recovered/Resolved]
